FAERS Safety Report 11830313 (Version 4)
Quarter: 2016Q3

REPORT INFORMATION
  Report Type: Spontaneous
  Country: US (occurrence: US)
  Receive Date: 20151214
  Receipt Date: 20160907
  Transmission Date: 20161109
  Serious: Yes (Other)
  Sender: FDA-Public Use
  Company Number: US-JNJFOC-20151105997

PATIENT
  Age: 56 Year
  Sex: Female
  Weight: 65.32 kg

DRUGS (1)
  1. LEVAQUIN [Suspect]
     Active Substance: LEVOFLOXACIN
     Indication: DIVERTICULITIS
     Route: 048
     Dates: start: 20060828, end: 200608

REACTIONS (8)
  - Cardiovascular disorder [Unknown]
  - Off label use [Unknown]
  - Musculoskeletal disorder [Unknown]
  - Product use issue [Unknown]
  - Drug hypersensitivity [Unknown]
  - Neuropathy peripheral [Not Recovered/Not Resolved]
  - Tendonitis [Unknown]
  - Mental disorder [Unknown]

NARRATIVE: CASE EVENT DATE: 20060828
